FAERS Safety Report 25312451 (Version 1)
Quarter: 2025Q2

REPORT INFORMATION
  Report Type: Spontaneous
  Country: TW (occurrence: TW)
  Receive Date: 20250514
  Receipt Date: 20250514
  Transmission Date: 20250716
  Serious: Yes (Hospitalization, Other)
  Sender: OTSUKA
  Company Number: TW-MMM-Otsuka-K410HFNZ

PATIENT
  Sex: Female
  Weight: 40 kg

DRUGS (4)
  1. REXULTI [Suspect]
     Active Substance: BREXPIPRAZOLE
     Indication: Schizophrenia
     Dosage: 1 MG, QD
     Route: 048
     Dates: start: 20241119
  2. ZYVOX [Suspect]
     Active Substance: LINEZOLID
     Indication: Skin infection
     Dosage: 600 MG, BID (EVERY 12 HOURS)
     Route: 048
     Dates: start: 20241115, end: 20241203
  3. ZYVOX [Suspect]
     Active Substance: LINEZOLID
     Indication: Postoperative wound infection
  4. HEPURI [Concomitant]
     Indication: Antiviral treatment
     Route: 065

REACTIONS (3)
  - Pneumonia [Recovering/Resolving]
  - Drug-induced liver injury [Recovering/Resolving]
  - Hepatic enzyme increased [Recovering/Resolving]
